FAERS Safety Report 9774382 (Version 3)
Quarter: 2014Q2

REPORT INFORMATION
  Report Type: Spontaneous
  Country: BR (occurrence: BR)
  Receive Date: 20131220
  Receipt Date: 20140521
  Transmission Date: 20141212
  Serious: Yes (Hospitalization, Other)
  Sender: FDA-Public Use
  Company Number: BR-ASTRAZENECA-2013SE91551

PATIENT
  Age: 887 Month
  Sex: Male
  Weight: 70 kg

DRUGS (6)
  1. ABLOK [Suspect]
     Indication: HYPERTENSION
     Dosage: DAILY
     Route: 048
     Dates: start: 2010
  2. OMEPRAZOLE (UNSPECIFIED MANUFACTURER) [Suspect]
     Indication: GASTRITIS PROPHYLAXIS
     Dosage: DAILY
     Route: 048
     Dates: start: 2010
  3. BRILINTA [Suspect]
     Indication: THROMBOSIS PROPHYLAXIS
     Route: 048
     Dates: start: 201212, end: 201403
  4. SUSTRATE [Concomitant]
     Indication: CARDIAC DISORDER
     Dosage: DAILY
     Route: 048
     Dates: start: 2010
  5. SIMVASTATIN [Concomitant]
     Indication: BLOOD CHOLESTEROL INCREASED
     Dosage: DAILY
     Route: 048
     Dates: start: 2010
  6. ASA [Concomitant]
     Route: 048
     Dates: start: 2004

REACTIONS (6)
  - Venous occlusion [Recovered/Resolved]
  - Dyspnoea exertional [Recovered/Resolved]
  - Arterial occlusive disease [Unknown]
  - Blood cholesterol increased [Not Recovered/Not Resolved]
  - Hypotension [Not Recovered/Not Resolved]
  - Off label use [Recovered/Resolved]
